FAERS Safety Report 5567552-X (Version None)
Quarter: 2007Q4

REPORT INFORMATION
  Report Type: 
  Country: None (occurrence: None)
  Receive Date: 20071219
  Receipt Date: 20071207
  Transmission Date: 20080405
  Serious: Yes (Other)
  Sender: FDA-Public Use
  Company Number: US-PFIZER INC-2006122822

PATIENT
  Sex: Male

DRUGS (31)
  1. LIPITOR [Suspect]
     Dates: start: 20040920, end: 20060701
  2. PLAQUENIL [Concomitant]
     Indication: RHEUMATOID ARTHRITIS
  3. ARAVA [Concomitant]
  4. FUROSEMIDE [Concomitant]
     Dates: end: 20050714
  5. MOBIC [Concomitant]
  6. GABAPENTIN [Concomitant]
     Dates: end: 20060101
  7. ZYRTEC [Concomitant]
     Dates: start: 20050919
  8. NASONEX [Concomitant]
     Route: 045
  9. PREDNISONE [Concomitant]
  10. CLARITIN [Concomitant]
     Dates: end: 20050919
  11. FISH OIL [Concomitant]
  12. VITAMIN E [Concomitant]
  13. ASPIRIN [Concomitant]
  14. ELAVIL [Concomitant]
     Dates: start: 20061114
  15. FLOMAX [Concomitant]
  16. CLONIDINE [Concomitant]
     Dates: start: 20070307, end: 20070329
  17. NIASPAN [Concomitant]
     Dates: start: 20060701
  18. MICARDIS [Concomitant]
     Dates: start: 20050714, end: 20070329
  19. DILTIAZEM [Concomitant]
     Dates: start: 20061229, end: 20070329
  20. OMACOR [Concomitant]
     Dates: start: 20060503
  21. DIOVAN HCT [Concomitant]
  22. CYMBALTA [Concomitant]
  23. TRICOR [Concomitant]
     Dates: start: 20060101, end: 20060503
  24. TESTOSTERONE [Concomitant]
  25. REQUIP [Concomitant]
  26. PROTONIX [Concomitant]
  27. PRILOSEC [Concomitant]
  28. CIALIS [Concomitant]
  29. LYRICA [Concomitant]
     Dates: start: 20060101, end: 20061114
  30. NORVASC [Concomitant]
     Dates: start: 20061218, end: 20061229
  31. LOTREL [Concomitant]

REACTIONS (8)
  - AMNESIA [None]
  - ASTHENIA [None]
  - COGNITIVE DISORDER [None]
  - DEPRESSION [None]
  - DISORIENTATION [None]
  - FATIGUE [None]
  - MYOPATHY [None]
  - NEUROPATHY PERIPHERAL [None]
